FAERS Safety Report 5744439-0 (Version None)
Quarter: 2008Q2

REPORT INFORMATION
  Report Type: 
  Country: None (occurrence: None)
  Receive Date: 20080516
  Receipt Date: 20080507
  Transmission Date: 20081010
  Serious: Yes (Other)
  Sender: FDA-Public Use
  Company Number: 2008SP008622

PATIENT
  Age: 48 Year
  Sex: Female

DRUGS (3)
  1. CLARITIN [Suspect]
     Indication: DRUG USE FOR UNKNOWN INDICATION
  2. FEMARA [Concomitant]
  3. AVAPRO [Concomitant]

REACTIONS (2)
  - PARAESTHESIA [None]
  - VISION BLURRED [None]
